FAERS Safety Report 6037375-6 (Version None)
Quarter: 2009Q1

REPORT INFORMATION
  Report Type: 
  Country: None (occurrence: None)
  Receive Date: 20090114
  Receipt Date: 20090102
  Transmission Date: 20090719
  Serious: Yes (Hospitalization, Other)
  Sender: FDA-Public Use
  Company Number: GB-PFIZER INC-2009152925

PATIENT

DRUGS (12)
  1. RIFABUTIN [Suspect]
     Indication: MYCOBACTERIUM AVIUM COMPLEX INFECTION
     Dosage: 450 MG, 1X/DAY
     Route: 048
     Dates: start: 20080905, end: 20081016
  2. DAPSONE [Suspect]
     Indication: PNEUMOCYSTIS JIROVECI PNEUMONIA
     Dosage: 100 MG, 1X/DAY
     Route: 048
     Dates: start: 20080801, end: 20081031
  3. DIAZEPAM [Suspect]
     Indication: INSOMNIA
     Dosage: 5 MG, 1X/DAY
     Route: 048
     Dates: start: 20080522, end: 20081204
  4. EMTRICITABINE/TENOFOVIR DISOPROXIL FUMARATE [Suspect]
     Indication: HIV INFECTION
     Dosage: UNK
     Route: 048
     Dates: start: 20080522, end: 20080801
  5. ETHAMBUTOL [Suspect]
     Indication: MYCOBACTERIUM AVIUM COMPLEX INFECTION
     Dosage: 1 G, 1X/DAY
     Route: 048
     Dates: start: 20080905, end: 20081016
  6. EFAVIRENZ [Suspect]
     Indication: HIV INFECTION
     Dosage: 600 MG, 1X/DAY
     Route: 048
     Dates: start: 20080522, end: 20080801
  7. CLARITHROMYCIN [Suspect]
     Indication: MYCOBACTERIUM AVIUM COMPLEX INFECTION
     Dosage: 500 MG, 2X/DAY
     Route: 048
     Dates: start: 20080905, end: 20081016
  8. EFAVIRENZ/EMTRICITABINE/TENOFOVIR DISOPROXIL FUMARATE [Suspect]
     Indication: HIV INFECTION
     Dosage: 1 DOSE FORM
     Route: 048
     Dates: start: 20080801, end: 20081016
  9. BECLOMETHASONE DIPROPIONATE [Concomitant]
  10. CETIRIZINE [Concomitant]
  11. SALBUTAMOL [Concomitant]
  12. TERBINAFINE [Concomitant]

REACTIONS (6)
  - ASTHENIA [None]
  - CARDIAC ARREST [None]
  - CONFUSIONAL STATE [None]
  - HYPERKALAEMIA [None]
  - LOSS OF CONSCIOUSNESS [None]
  - RENAL TUBULAR NECROSIS [None]
